FAERS Safety Report 9109335 (Version 1)
Quarter: 2013Q1

REPORT INFORMATION
  Report Type: Spontaneous
  Country: US (occurrence: US)
  Receive Date: 20130222
  Receipt Date: 20130222
  Transmission Date: 20140127
  Serious: No
  Sender: FDA-Public Use
  Company Number: US-ASTRAZENECA-2013SE10548

PATIENT
  Age: 41 Year
  Sex: Female
  Weight: 117.9 kg

DRUGS (1)
  1. NEXIUM [Suspect]
     Indication: BARRETT^S OESOPHAGUS
     Route: 048

REACTIONS (6)
  - Weight increased [Unknown]
  - Regurgitation [Unknown]
  - Sleep disorder due to general medical condition, insomnia type [Unknown]
  - Off label use [Unknown]
  - Off label use [Unknown]
  - Drug dose omission [Unknown]
